FAERS Safety Report 4968898-6 (Version None)
Quarter: 2006Q2

REPORT INFORMATION
  Report Type: 
  Country: None (occurrence: None)
  Receive Date: 20060411
  Receipt Date: 20051114
  Transmission Date: 20061013
  Serious: Yes (Other)
  Sender: FDA-Public Use
  Company Number: US-MERCK-0511USA02596

PATIENT
  Age: 32 Year
  Sex: Female
  Weight: 55 kg

DRUGS (4)
  1. VIOXX [Suspect]
     Indication: ARTHRITIS
     Route: 048
     Dates: start: 20020701, end: 20040901
  2. PERCOCET [Concomitant]
     Route: 065
  3. TYLENOL W/ CODEINE NO. 4 [Concomitant]
     Route: 065
  4. MORPHINE [Concomitant]
     Route: 065

REACTIONS (12)
  - ARTHRALGIA [None]
  - BONE PAIN [None]
  - CHEST PAIN [None]
  - CROHN'S DISEASE [None]
  - DYSURIA [None]
  - ENTEROCOLITIS [None]
  - GASTROINTESTINAL FISTULA [None]
  - HAEMORRHAGE [None]
  - INTESTINAL FUNCTIONAL DISORDER [None]
  - PAIN [None]
  - PELVIC HAEMORRHAGE [None]
  - PRESCRIBED OVERDOSE [None]
